FAERS Safety Report 8966762 (Version 1)
Quarter: 2012Q4

REPORT INFORMATION
  Report Type: 
  Country: US (occurrence: US)
  Receive Date: 20121217
  Receipt Date: 20121217
  Transmission Date: 20130627
  Serious: Yes (Other)
  Sender: FDA-Public Use
  Company Number: US-PFIZER INC-2012317385

PATIENT
  Age: 35 Year
  Sex: Female
  Weight: 61.22 kg

DRUGS (1)
  1. VENLAFAXINE HYDROCHLORIDE [Suspect]
     Indication: DEPRESSION
     Dosage: 37.5 mg, 1x/day
     Route: 048
     Dates: start: 20121206, end: 20121207

REACTIONS (8)
  - Impaired work ability [Unknown]
  - Diplopia [Unknown]
  - Strabismus [Unknown]
  - Hypersomnia [Unknown]
  - Fatigue [Unknown]
  - Dizziness [Unknown]
  - Asthenia [Unknown]
  - Feeling abnormal [Unknown]
